FAERS Safety Report 9949334 (Version 1)
Quarter: 2014Q1

REPORT INFORMATION
  Report Type: Spontaneous
  Country: US (occurrence: US)
  Receive Date: 20140304
  Receipt Date: 20140304
  Transmission Date: 20141002
  Serious: No
  Sender: FDA-Public Use
  Company Number: US-PFIZER INC-2014060206

PATIENT
  Age: 86 Year
  Sex: Female

DRUGS (6)
  1. LIPITOR [Suspect]
     Indication: BLOOD CHOLESTEROL
     Dosage: 10 MG, DAILY
  2. LIPITOR [Suspect]
     Dosage: 20 MG, DAILY
  3. LIPITOR [Suspect]
     Dosage: UNK,1X/DAY
  4. ADVIL [Concomitant]
     Indication: ARTHRITIS
     Dosage: 2 DF, 2X/DAY
  5. ASPIRIN [Concomitant]
     Indication: CARDIAC DISORDER
     Dosage: 81 MG, DAILY
  6. ASPIRIN [Concomitant]
     Indication: ANTICOAGULANT THERAPY

REACTIONS (1)
  - Drug ineffective [Unknown]
